FAERS Safety Report 18373457 (Version 1)
Quarter: 2020Q4

REPORT INFORMATION
  Report Type: Report from Study
  Country: BR (occurrence: BR)
  Receive Date: 20201012
  Receipt Date: 20201012
  Transmission Date: 20210114
  Serious: Yes (Other)
  Sender: FDA-Public Use
  Company Number: NVSC2020BR270697

PATIENT
  Sex: Female

DRUGS (1)
  1. DIOVAN AMLO FIX [Suspect]
     Active Substance: AMLODIPINE\VALSARTAN
     Indication: PRODUCT USED FOR UNKNOWN INDICATION
     Dosage: UNK (DECREASED TO 5/160 MG)
     Route: 065

REACTIONS (5)
  - Asthenia [Unknown]
  - Presyncope [Unknown]
  - Hypotension [Unknown]
  - Product dose omission issue [Unknown]
  - Sluggishness [Unknown]
